FAERS Safety Report 8482719-9 (Version None)
Quarter: 2012Q3

REPORT INFORMATION
  Report Type: 
  Country: None (occurrence: None)
  Receive Date: 20120702
  Receipt Date: 20120620
  Transmission Date: 20120928
  Serious: Yes (Hospitalization, Other)
  Sender: FDA-Public Use
  Company Number: FR-BRISTOL-MYERS SQUIBB COMPANY-16704751

PATIENT
  Age: 79 Year
  Sex: Female

DRUGS (4)
  1. LASIX [Interacting]
     Dosage: INTERRUPTED ON 28MAY2012
     Route: 048
  2. IRBESARTAN + HYDROCHLOROTHIAZIDE [Suspect]
     Indication: HYPERTENSION
     Route: 048
     Dates: end: 20120528
  3. FLECTOR [Concomitant]
     Dosage: 1DF=2 APPLICATIONS 1 PERCENT, GEL
     Route: 003
  4. FLECAINIDE ACETATE [Concomitant]
     Indication: ARRHYTHMIA
     Dosage: 2DF SCORED TABS
     Route: 048
     Dates: end: 20120529

REACTIONS (3)
  - DRUG INTERACTION [None]
  - RENAL FAILURE ACUTE [None]
  - HYPERTENSION [None]
